FAERS Safety Report 18575601 (Version 1)
Quarter: 2020Q4

REPORT INFORMATION
  Report Type: Spontaneous
  Country: US (occurrence: US)
  Receive Date: 20201203
  Receipt Date: 20201203
  Transmission Date: 20210114
  Serious: Yes (Other)
  Sender: FDA-Public Use
  Company Number: NVSC2020US319119

PATIENT
  Sex: Male

DRUGS (6)
  1. JADENU [Suspect]
     Active Substance: DEFERASIROX
     Indication: IRON METABOLISM DISORDER
  2. NALTREXONE HCL [Concomitant]
     Active Substance: NALTREXONE HYDROCHLORIDE
     Indication: PRODUCT USED FOR UNKNOWN INDICATION
     Route: 065
  3. JADENU [Suspect]
     Active Substance: DEFERASIROX
     Indication: THALASSAEMIA MINOR
  4. LISINOPRIL. [Concomitant]
     Active Substance: LISINOPRIL
     Indication: PRODUCT USED FOR UNKNOWN INDICATION
     Route: 065
  5. JADENU [Suspect]
     Active Substance: DEFERASIROX
     Indication: THALASSAEMIA ALPHA
     Dosage: UNK UNK, QD
     Route: 048
  6. MULTI VITAMIN [Concomitant]
     Active Substance: VITAMINS
     Indication: PRODUCT USED FOR UNKNOWN INDICATION
     Route: 065

REACTIONS (1)
  - Colon cancer [Unknown]
